FAERS Safety Report 9516033 (Version 2)
Quarter: 2013Q3

REPORT INFORMATION
  Report Type: Spontaneous
  Country: US (occurrence: US)
  Receive Date: 20130911
  Receipt Date: 20130917
  Transmission Date: 20140515
  Serious: Yes (Other)
  Sender: FDA-Public Use
  Company Number: CHPA2013US013946

PATIENT
  Age: 62 Year
  Sex: Male

DRUGS (3)
  1. VOLTAREN GEL [Suspect]
     Indication: PARAESTHESIA
     Dosage: UNK, UNK
     Route: 061
  2. VOLTAREN GEL [Suspect]
     Indication: LIGAMENT RUPTURE
  3. FLECTOR PATCH [Suspect]
     Indication: ARTHROPATHY
     Dosage: UNK, UNK
     Route: 062

REACTIONS (6)
  - Iliotibial band syndrome [Recovered/Resolved]
  - Scar [Recovered/Resolved]
  - Drug administration error [Unknown]
  - Off label use [Unknown]
  - Therapeutic response unexpected [Unknown]
  - Wrong technique in drug usage process [Unknown]
